FAERS Safety Report 7864636-8 (Version None)
Quarter: 2011Q4

REPORT INFORMATION
  Report Type: 
  Country: None (occurrence: None)
  Receive Date: 20111028
  Receipt Date: 20111019
  Transmission Date: 20120403
  Serious: Yes (Hospitalization)
  Sender: FDA-Public Use
  Company Number: JP-ASTRAZENECA-2011SE62813

PATIENT
  Age: 25390 Day
  Sex: Male

DRUGS (7)
  1. ENALAPRIL MALEATE [Concomitant]
     Indication: HYPERTENSION
     Route: 048
     Dates: start: 20110423
  2. ASPIRIN [Suspect]
     Indication: ACUTE CORONARY SYNDROME
     Route: 048
     Dates: start: 20110415
  3. CEFPODOXIME PROXETIL [Concomitant]
     Indication: POST PROCEDURAL INFECTION
     Route: 048
     Dates: start: 20110518
  4. PLAVIX [Suspect]
     Indication: ACUTE CORONARY SYNDROME
     Dosage: TWICE DAILY
     Route: 048
     Dates: start: 20110415
  5. LIPITOR [Concomitant]
     Indication: DYSLIPIDAEMIA
     Route: 048
     Dates: start: 20110423
  6. CEFPODOXIME PROXETIL [Concomitant]
     Route: 048
     Dates: start: 20111019, end: 20111022
  7. PLACEBO [Suspect]
     Indication: ACUTE CORONARY SYNDROME
     Dosage: DAILY
     Route: 048
     Dates: start: 20110415

REACTIONS (1)
  - THROMBOSIS IN DEVICE [None]
